FAERS Safety Report 4672765-5 (Version None)
Quarter: 2005Q2

REPORT INFORMATION
  Report Type: 
  Country: None (occurrence: None)
  Receive Date: 20050523
  Receipt Date: 20050324
  Transmission Date: 20051028
  Serious: Yes (Other)
  Sender: FDA-Public Use
  Company Number: 2005074426

PATIENT
  Age: 20 Year
  Sex: Male

DRUGS (1)
  1. VFEND [Suspect]
     Indication: SCEDOSPORIUM INFECTION

REACTIONS (1)
  - LEUKAEMIA RECURRENT [None]
